FAERS Safety Report 17949877 (Version 2)
Quarter: 2020Q3

REPORT INFORMATION
  Report Type: Report from Study
  Country: US (occurrence: US)
  Receive Date: 20200625
  Receipt Date: 20200728
  Transmission Date: 20201103
  Serious: Yes (Death, Hospitalization)
  Sender: FDA-Public Use
  Company Number: US-ACTELION-A-NJ2020-206033

PATIENT
  Age: 73 Year
  Sex: Female
  Weight: 76.19 kg

DRUGS (22)
  1. ALDACTONE [Concomitant]
     Active Substance: SPIRONOLACTONE
     Dosage: 25 MG, QD
     Dates: start: 20200520
  2. LASIX [Concomitant]
     Active Substance: FUROSEMIDE
     Dosage: 40 MG, QD
     Dates: start: 20200302
  3. VITAMINS NOS [Concomitant]
     Active Substance: VITAMINS
  4. TYLENOL WITH CODEINE [Concomitant]
     Active Substance: ACETAMINOPHEN\CODEINE PHOSPHATE
     Dosage: 1 TABLET, Q4H, PRN
  5. TAPAZOLE [Concomitant]
     Active Substance: METHIMAZOLE
     Dosage: 2.5 MG, QOD
     Dates: start: 20200317
  6. WELLBUTRIN [Concomitant]
     Active Substance: BUPROPION HYDROCHLORIDE
     Dosage: 150 MG, QD
     Dates: start: 20181219
  7. MELATONIN [Concomitant]
     Active Substance: MELATONIN
     Dosage: 5 MG, QD
     Dates: start: 20150410
  8. COUMADIN [Concomitant]
     Active Substance: WARFARIN SODIUM
  9. LIPITOR [Concomitant]
     Active Substance: ATORVASTATIN CALCIUM
     Dosage: 20 MG, QD
     Dates: start: 20180719
  10. VITAMIN D3 [Concomitant]
     Active Substance: CHOLECALCIFEROL
     Dosage: 1000 U, QD
     Dates: start: 20090212
  11. OMEGA 3 [FISH OIL] [Concomitant]
     Active Substance: FISH OIL
     Dosage: 1000 MG, QD
     Dates: start: 20160404
  12. TYVASO [Concomitant]
     Active Substance: TREPROSTINIL
     Dosage: 12 INHALATIONSIN, QID
     Dates: start: 20190121
  13. K?TAB [Concomitant]
     Active Substance: POTASSIUM CHLORIDE
     Dosage: 20 MEQ, QD
     Dates: start: 20200416
  14. FOSAMAX [Concomitant]
     Active Substance: ALENDRONATE SODIUM
     Dosage: 70 MG, WEEKLY
     Dates: start: 20190424
  15. BOSENTAN. [Concomitant]
     Active Substance: BOSENTAN
     Dosage: 125 MG, BID
     Route: 048
     Dates: start: 20190925
  16. REVATIO [Concomitant]
     Active Substance: SILDENAFIL CITRATE
     Dosage: 80 MG, TID
     Dates: start: 20190911
  17. LOPRESSOR [Concomitant]
     Active Substance: METOPROLOL TARTRATE
     Dosage: 25 MG, BID
     Dates: start: 20200612
  18. UPTRAVI [Suspect]
     Active Substance: SELEXIPAG
     Indication: PULMONARY ARTERIAL HYPERTENSION
     Dosage: 200 MCG, BID
     Route: 048
  19. LOPRESSOR [Concomitant]
     Active Substance: METOPROLOL TARTRATE
     Dosage: 125 MG, BID
     Dates: start: 20181105
  20. ZOLOFT [Concomitant]
     Active Substance: SERTRALINE HYDROCHLORIDE
     Dosage: 100 MG, QD
     Dates: start: 20200605
  21. ATIVAN [Concomitant]
     Active Substance: LORAZEPAM
     Dosage: 2 MG, QPM
     Dates: start: 20200610
  22. NYSTATIN. [Concomitant]
     Active Substance: NYSTATIN
     Dosage: POWDER TO AFFECTED AREAS, BID
     Dates: start: 20200320

REACTIONS (8)
  - Headache [Unknown]
  - Pulmonary arterial hypertension [Fatal]
  - Back pain [Unknown]
  - Cardiac arrest [Fatal]
  - Pulseless electrical activity [Fatal]
  - Condition aggravated [Fatal]
  - Malaise [Unknown]
  - Diarrhoea [Unknown]

NARRATIVE: CASE EVENT DATE: 20200613
